FAERS Safety Report 5389455-6 (Version None)
Quarter: 2007Q3

REPORT INFORMATION
  Report Type: 
  Country: None (occurrence: None)
  Receive Date: 20070717
  Receipt Date: 20070706
  Transmission Date: 20080115
  Serious: Yes (Other)
  Sender: FDA-Public Use
  Company Number: DE-ELI_LILLY_AND_COMPANY-DE_050616072

PATIENT
  Age: 64 Year
  Sex: Female

DRUGS (2)
  1. GEMCITABINE HCL [Suspect]
     Indication: OESOPHAGEAL CANCER METASTATIC
     Dosage: 1000 MG/M2, UNKNOWN
     Route: 042
  2. DOCETAXEL [Concomitant]
     Indication: OESOPHAGEAL CANCER METASTATIC
     Dosage: 75 MG/M2, OTHER

REACTIONS (1)
  - RECALL PHENOMENON [None]
